FAERS Safety Report 6992661-8 (Version None)
Quarter: 2010Q3

REPORT INFORMATION
  Report Type: 
  Country: None (occurrence: None)
  Receive Date: 20100916
  Receipt Date: 20100916
  Transmission Date: 20110219
  Serious: Yes (Hospitalization, Other)
  Sender: FDA-Public Use
  Company Number: None

PATIENT
  Age: 58 Year
  Sex: Female
  Weight: 129.2752 kg

DRUGS (13)
  1. ASTEPRO [Suspect]
     Indication: ASTHMA
     Dosage: 2 SPRAYS EACH NOSTRIL 1X DAILY NASAL
     Route: 045
  2. ASTEPRO [Suspect]
     Indication: RHINITIS
     Dosage: 2 SPRAYS EACH NOSTRIL 1X DAILY NASAL
     Route: 045
  3. ASTELIN/ASTEPRO BOTH AT LESSER STRENGTH BEFORE SWITCHING TO #1 [Suspect]
     Indication: ASTHMA
     Dosage: 2 SPRAYS EACH NOSTRIL 2 X DAILY NASAL
     Route: 045
  4. ASTELIN/ASTEPRO BOTH AT LESSER STRENGTH BEFORE SWITCHING TO #1 [Suspect]
     Indication: RHINITIS
     Dosage: 2 SPRAYS EACH NOSTRIL 2 X DAILY NASAL
     Route: 045
  5. ZOLOFT [Concomitant]
  6. TRAZODONE HCL [Concomitant]
  7. ADVAIR DISKUS 100/50 [Concomitant]
  8. ALBUTEROL [Concomitant]
  9. SINGULAIR [Concomitant]
  10. ALLEGRA, OCEAN SPRAY SALINE [Concomitant]
  11. SYNTHROID [Concomitant]
  12. VITAMIN D [Concomitant]
  13. MULTIVITAMIN -CENTRUM  SILVER [Concomitant]

REACTIONS (7)
  - ACTIVITIES OF DAILY LIVING IMPAIRED [None]
  - ARTHRALGIA [None]
  - BONE PAIN [None]
  - FEELING ABNORMAL [None]
  - HYPOAESTHESIA [None]
  - MYALGIA [None]
  - PARAESTHESIA [None]
